FAERS Safety Report 24337509 (Version 1)
Quarter: 2024Q3

REPORT INFORMATION
  Report Type: Spontaneous
  Country: US (occurrence: US)
  Receive Date: 20240919
  Receipt Date: 20240919
  Transmission Date: 20241016
  Serious: Yes (Hospitalization)
  Sender: ALVOGEN
  Company Number: US-BMS-IMIDS-REMS_SI-11707513

PATIENT
  Sex: Male

DRUGS (1)
  1. LENALIDOMIDE [Suspect]
     Active Substance: LENALIDOMIDE
     Indication: Product used for unknown indication
     Dates: start: 20240418

REACTIONS (4)
  - Blood pressure fluctuation [Unknown]
  - Somnolence [Unknown]
  - Fatigue [Unknown]
  - Off label use [Unknown]

NARRATIVE: CASE EVENT DATE: 20240101
